FAERS Safety Report 5884469-1 (Version None)
Quarter: 2008Q3

REPORT INFORMATION
  Report Type: 
  Country: None (occurrence: None)
  Receive Date: 20080916
  Receipt Date: 20080905
  Transmission Date: 20090109
  Serious: Yes (Hospitalization, Other)
  Sender: FDA-Public Use
  Company Number: GB-RANBAXY-2008RR-17477

PATIENT

DRUGS (1)
  1. FLUOXETINE [Suspect]
     Indication: DEPRESSION

REACTIONS (4)
  - CARCINOID SYNDROME [None]
  - CONDITION AGGRAVATED [None]
  - DIARRHOEA [None]
  - FLUSHING [None]
